FAERS Safety Report 25394841 (Version 1)
Quarter: 2025Q2

REPORT INFORMATION
  Report Type: Spontaneous
  Country: US (occurrence: US)
  Receive Date: 20250604
  Receipt Date: 20250604
  Transmission Date: 20250717
  Serious: Yes (Hospitalization, Other)
  Sender: AUROBINDO
  Company Number: US-MLMSERVICE-20250514-PI506788-00271-1

PATIENT
  Age: 70 Year
  Sex: Male

DRUGS (1)
  1. PREDNISONE [Suspect]
     Active Substance: PREDNISONE
     Indication: Focal segmental glomerulosclerosis
     Dosage: 60 MILLIGRAM, ONCE A DAY
     Route: 065

REACTIONS (12)
  - Cutaneous vasculitis [Recovering/Resolving]
  - Pneumonia parainfluenzae viral [Recovered/Resolved]
  - Eosinophilia [Unknown]
  - Swollen tongue [Unknown]
  - Eye swelling [Unknown]
  - Visual acuity reduced [Unknown]
  - Abdominal pain [Unknown]
  - Conjunctival oedema [Unknown]
  - Conjunctivitis [Unknown]
  - Haematuria [Unknown]
  - Proteinuria [Unknown]
  - Myalgia [Recovered/Resolved]
